FAERS Safety Report 9578548 (Version 1)
Quarter: 2013Q4

REPORT INFORMATION
  Report Type: Spontaneous
  Country: US (occurrence: US)
  Receive Date: 20131001
  Receipt Date: 20131001
  Transmission Date: 20140711
  Serious: No
  Sender: FDA-Public Use
  Company Number: US-AMGEN-USASP2013013598

PATIENT
  Sex: Male
  Weight: 111.11 kg

DRUGS (14)
  1. ENBREL [Suspect]
     Indication: PSORIASIS
     Dosage: 50 MG/ML, QWK
     Route: 058
  2. CALCIUM [Concomitant]
     Dosage: 500 UNK, UNK
  3. SEROQUEL [Concomitant]
     Dosage: 100 MG, UNK
  4. CLONAZEPAM [Concomitant]
     Dosage: 2 MG, UNK
  5. METOPROLOL [Concomitant]
     Dosage: 200 MG, UNK
  6. REMERON [Concomitant]
     Dosage: 45 MG, UNK
  7. ALTACE [Concomitant]
     Dosage: 2.5 MG, UNK
  8. TERAZOSIN [Concomitant]
     Dosage: 5 MG, UNK
  9. LEXAPRO [Concomitant]
     Dosage: 5 MG, UNK
  10. FLINTSTONES [Concomitant]
     Dosage: UNK
  11. DEPAKOTE [Concomitant]
     Dosage: 250 MG, UNK
  12. WELLBUTRIN [Concomitant]
     Dosage: 100 MG, UNK
  13. PLAVIX [Concomitant]
     Dosage: 75 MG, UNK
  14. VITAMIN B12                        /00056201/ [Concomitant]
     Dosage: 250 MUG, UNK

REACTIONS (1)
  - Drug ineffective [Unknown]
